FAERS Safety Report 16980972 (Version 1)
Quarter: 2019Q4

REPORT INFORMATION
  Report Type: Spontaneous
  Country: US (occurrence: US)
  Receive Date: 20191031
  Receipt Date: 20191031
  Transmission Date: 20200122
  Serious: No
  Sender: FDA-Public Use
  Company Number: US-UPSHER-SMITH LABORATORIES, LLC-2018USL00594

PATIENT
  Age: 79 Year
  Sex: Male
  Weight: 98.87 kg

DRUGS (3)
  1. JANTOVEN [Suspect]
     Active Substance: WARFARIN SODIUM
     Indication: DEEP VEIN THROMBOSIS
     Dosage: 5 MG, 1X/DAY
     Route: 048
     Dates: start: 201810, end: 2018
  2. GLIPIZIDE. [Concomitant]
     Active Substance: GLIPIZIDE
  3. JANTOVEN [Suspect]
     Active Substance: WARFARIN SODIUM
     Indication: DEEP VEIN THROMBOSIS
     Dosage: 7.5 MG, 1X/DAY
     Route: 048
     Dates: start: 2018

REACTIONS (2)
  - Skin discolouration [Unknown]
  - International normalised ratio decreased [Unknown]

NARRATIVE: CASE EVENT DATE: 2018
